FAERS Safety Report 16511914 (Version 2)
Quarter: 2019Q3

REPORT INFORMATION
  Report Type: Report from Study
  Country: PK (occurrence: PK)
  Receive Date: 20190702
  Receipt Date: 20190708
  Transmission Date: 20191004
  Serious: Yes (Hospitalization)
  Sender: FDA-Public Use
  Company Number: PHHY2019PK150167

PATIENT
  Age: 62 Year
  Sex: Male

DRUGS (2)
  1. GALVUMET [Suspect]
     Active Substance: METFORMIN HYDROCHLORIDE\VILDAGLIPTIN
     Indication: DIABETES MELLITUS
     Dosage: 1 DF (METFORMIN 1000 MG, VILDAGLIPTIN 50 MG), BID
     Route: 048
     Dates: start: 20170101, end: 20190528
  2. GALVUS [Suspect]
     Active Substance: VILDAGLIPTIN
     Indication: DIABETES MELLITUS
     Dosage: 1 DF, BID
     Route: 048
     Dates: start: 20190529, end: 20190605

REACTIONS (7)
  - Hyperglycaemia [Recovered/Resolved]
  - Confusional state [Unknown]
  - Urine output decreased [Unknown]
  - Polyuria [Unknown]
  - Costovertebral angle tenderness [Unknown]
  - Urinary tract obstruction [Recovered/Resolved]
  - Fatigue [Unknown]

NARRATIVE: CASE EVENT DATE: 20190528
